FAERS Safety Report 14611870 (Version 1)
Quarter: 2018Q1

REPORT INFORMATION
  Report Type: Spontaneous
  Country: US (occurrence: US)
  Receive Date: 20180308
  Receipt Date: 20180308
  Transmission Date: 20180509
  Serious: Yes (Hospitalization, Other)
  Sender: FDA-Public Use
  Company Number: US-TORRENT-00005721

PATIENT
  Age: 52 Year
  Sex: Male
  Weight: 97 kg

DRUGS (8)
  1. ANAGRELIDE HYDROCHLORIDE. [Suspect]
     Active Substance: ANAGRELIDE HYDROCHLORIDE
     Indication: ESSENTIAL THROMBOCYTHAEMIA
     Dosage: ANAGRELIDE 1 MG BY MOUTH 3 TIMES A DAY.
     Route: 048
  2. FOLIC ACID. [Concomitant]
     Active Substance: FOLIC ACID
     Indication: PRODUCT USED FOR UNKNOWN INDICATION
  3. OMEPRAZOLE. [Concomitant]
     Active Substance: OMEPRAZOLE
     Indication: PRODUCT USED FOR UNKNOWN INDICATION
  4. AMITRIPTYLINE [Concomitant]
     Active Substance: AMITRIPTYLINE
     Indication: PRODUCT USED FOR UNKNOWN INDICATION
  5. HYDROXYUREA. [Concomitant]
     Active Substance: HYDROXYUREA
     Indication: ESSENTIAL THROMBOCYTHAEMIA
     Dosage: HYDROXYUREA 1500 MG?BY MOUTH TWICE A DAY
     Route: 048
  6. TRAMADOL. [Concomitant]
     Active Substance: TRAMADOL
     Indication: PRODUCT USED FOR UNKNOWN INDICATION
  7. ASPIRIN. [Concomitant]
     Active Substance: ASPIRIN
     Indication: PRODUCT USED FOR UNKNOWN INDICATION
  8. HYDROCHLOROTHIAZIDE. [Concomitant]
     Active Substance: HYDROCHLOROTHIAZIDE
     Indication: PRODUCT USED FOR UNKNOWN INDICATION

REACTIONS (3)
  - Cardiomyopathy [Recovering/Resolving]
  - Oedema [Unknown]
  - Pulmonary congestion [Unknown]
